FAERS Safety Report 4992695-9 (Version None)
Quarter: 2006Q1

REPORT INFORMATION
  Report Type: 
  Country: None (occurrence: None)
  Receive Date: 20060315
  Receipt Date: 20051212
  Transmission Date: 20060701
  Serious: Yes (Other)
  Sender: FDA-Public Use
  Company Number: US200512000124

PATIENT
  Age: 69 Year
  Sex: Female
  Weight: 104.3 kg

DRUGS (1)
  1. GEMZAR [Suspect]
     Indication: PANCREATIC CARCINOMA
     Dosage: OTHER, INTRAVENOUS
     Route: 042
     Dates: start: 20051010, end: 20051121

REACTIONS (1)
  - PULMONARY FIBROSIS [None]
